FAERS Safety Report 16786431 (Version 2)
Quarter: 2021Q1

REPORT INFORMATION
  Report Type: Spontaneous
  Country: JP (occurrence: JP)
  Receive Date: 20190909
  Receipt Date: 20210128
  Transmission Date: 20210419
  Serious: Yes (Other)
  Sender: FDA-Public Use
  Company Number: JP-BAUSCH-BL-2019-025258

PATIENT
  Age: 74 Year
  Sex: Male

DRUGS (5)
  1. ALPHAGAN P [Interacting]
     Active Substance: BRIMONIDINE TARTRATE
     Indication: OPEN ANGLE GLAUCOMA
     Dosage: OPHTHALMIC SOLUTION IN BOTH EYES, 18?MONTH HISTORY
     Route: 047
  2. COSOPT [Interacting]
     Active Substance: DORZOLAMIDE HYDROCHLORIDE\TIMOLOL MALEATE
     Indication: OPEN ANGLE GLAUCOMA
     Dosage: IN BOTH EYES, 1% DORZOLAMIDE HYDROCHLORIDE/0.5% TIMOLOL MALEATE
     Route: 047
  3. SANCOBA [Concomitant]
     Active Substance: CYANOCOBALAMIN
     Indication: ASTHENOPIA
  4. LATANOPROST. [Suspect]
     Active Substance: LATANOPROST
     Indication: OPEN ANGLE GLAUCOMA
     Dosage: IN BOTH EYES, 19 MONTH HISTORY
     Route: 047
  5. LUMIGAN [Interacting]
     Active Substance: BIMATOPROST
     Indication: OPEN ANGLE GLAUCOMA
     Dosage: IN BOTH EYES
     Route: 047

REACTIONS (7)
  - Conjunctivitis [Unknown]
  - Conjunctival hyperaemia [Unknown]
  - Corneal infiltrates [Unknown]
  - Corneal neovascularisation [Recovering/Resolving]
  - Corneal opacity [Recovering/Resolving]
  - Keratitis interstitial [Unknown]
  - Drug interaction [Unknown]
